FAERS Safety Report 17127385 (Version 1)
Quarter: 2019Q4

REPORT INFORMATION
  Report Type: Spontaneous
  Country: US (occurrence: US)
  Receive Date: 20191114
  Receipt Date: 20191114
  Transmission Date: 20200122
  Serious: No
  Sender: FDA-Public Use
  Company Number: None

PATIENT
  Age: 70 Year
  Sex: Male

DRUGS (1)
  1. SEMAGLUTIDE [Suspect]
     Active Substance: SEMAGLUTIDE
     Indication: DIABETES MELLITUS
     Dates: start: 20190420, end: 20190808

REACTIONS (5)
  - Nausea [None]
  - Diarrhoea [None]
  - Gastrointestinal pain [None]
  - Vomiting [None]
  - Eructation [None]

NARRATIVE: CASE EVENT DATE: 20190909
